FAERS Safety Report 25764283 (Version 1)
Quarter: 2025Q3

REPORT INFORMATION
  Report Type: Spontaneous
  Country: US (occurrence: US)
  Receive Date: 20250905
  Receipt Date: 20250905
  Transmission Date: 20251021
  Serious: No
  Sender: DOMPE FARMACEUTICI
  Company Number: US-FARMAPROD-202412-4304

PATIENT
  Sex: Male
  Weight: 69.22 kg

DRUGS (37)
  1. OXERVATE [Suspect]
     Active Substance: CENEGERMIN-BKBJ
     Indication: Neurotrophic keratopathy
     Route: 047
     Dates: start: 20231124
  2. OXERVATE [Suspect]
     Active Substance: CENEGERMIN-BKBJ
     Route: 047
     Dates: start: 20241213
  3. SIMVASTATIN [Concomitant]
     Active Substance: SIMVASTATIN
  4. RAMIPRIL [Concomitant]
     Active Substance: RAMIPRIL
  5. XYZAL [Concomitant]
     Active Substance: LEVOCETIRIZINE DIHYDROCHLORIDE
  6. DUREZOL [Concomitant]
     Active Substance: DIFLUPREDNATE
  7. READI-CA [Concomitant]
  8. ZIRGAN [Concomitant]
     Active Substance: GANCICLOVIR
  9. DICYCLOMINE [Concomitant]
     Active Substance: DICYCLOMINE HYDROCHLORIDE
  10. MAXITROL [Concomitant]
     Active Substance: DEXAMETHASONE\NEOMYCIN SULFATE\POLYMYXIN B SULFATE
  11. POLYMYXIN B SULFATE\TRIMETHOPRIM SULFATE [Concomitant]
     Active Substance: POLYMYXIN B SULFATE\TRIMETHOPRIM SULFATE
  12. AZELASTINE HYDROCHLORIDE [Concomitant]
     Active Substance: AZELASTINE HYDROCHLORIDE
  13. FAMCICLOVIR [Concomitant]
     Active Substance: FAMCICLOVIR
  14. LACTULOSE [Concomitant]
     Active Substance: LACTULOSE
  15. PANTOPRAZOLE SODIUM [Concomitant]
     Active Substance: PANTOPRAZOLE SODIUM
  16. ASPIRIN [Concomitant]
     Active Substance: ASPIRIN
  17. CYCLOBENZAPRINE [Concomitant]
     Active Substance: CYCLOBENZAPRINE
  18. VFEND [Concomitant]
     Active Substance: VORICONAZOLE
  19. TAMSULOSIN [Concomitant]
     Active Substance: TAMSULOSIN
  20. METFORMIN [Concomitant]
     Active Substance: METFORMIN HYDROCHLORIDE
  21. LOTEPREDNOL ETABONATE [Concomitant]
     Active Substance: LOTEPREDNOL ETABONATE
  22. GATIFLOXACIN [Concomitant]
     Active Substance: GATIFLOXACIN
  23. METRONIDAZOLE [Concomitant]
     Active Substance: METRONIDAZOLE
  24. MONTELUKAST SODIUM [Concomitant]
     Active Substance: MONTELUKAST SODIUM
  25. FLUTICASONE PROPIONATE [Concomitant]
     Active Substance: FLUTICASONE PROPIONATE
  26. CARVEDILOL [Concomitant]
     Active Substance: CARVEDILOL
  27. PROMETHAZINE-DM [Concomitant]
  28. AZITHROMYCIN [Concomitant]
     Active Substance: AZITHROMYCIN
  29. CELECOXIB [Concomitant]
     Active Substance: CELECOXIB
  30. DOXYCYCLINE [Concomitant]
     Active Substance: DOXYCYCLINE
  31. NEOMYCIN-POLYMYXIN-DEXAMETH [Concomitant]
  32. MOXIFLOXACIN [Concomitant]
     Active Substance: MOXIFLOXACIN
  33. TRIFLURIDINE [Concomitant]
     Active Substance: TRIFLURIDINE
  34. OXYCODONE [Concomitant]
     Active Substance: OXYCODONE
  35. RESTASIS [Concomitant]
     Active Substance: CYCLOSPORINE
  36. MINERALS\VITAMINS [Concomitant]
     Active Substance: MINERALS\VITAMINS
  37. VALACYCLOVIR [Concomitant]
     Active Substance: VALACYCLOVIR HYDROCHLORIDE

REACTIONS (1)
  - Eye pain [Unknown]
